FAERS Safety Report 9319415 (Version 1)
Quarter: 2013Q2

REPORT INFORMATION
  Report Type: Spontaneous
  Country: US (occurrence: US)
  Receive Date: 20130530
  Receipt Date: 20130530
  Transmission Date: 20140414
  Serious: No
  Sender: FDA-Public Use
  Company Number: US-GLAXOSMITHKLINE-A0974349A

PATIENT
  Age: 49 Year
  Sex: Male

DRUGS (6)
  1. FLOLAN [Suspect]
     Indication: PRODUCT USED FOR UNKNOWN INDICATION
     Dosage: 8NGKM SEE DOSAGE TEXT
     Route: 042
  2. ZOLOFT [Concomitant]
  3. PREDNISONE [Concomitant]
  4. VENTOLIN [Concomitant]
  5. WARFARIN [Concomitant]
  6. SYMBICORT [Concomitant]

REACTIONS (1)
  - Bronchitis [Unknown]
